FAERS Safety Report 7555029-1 (Version None)
Quarter: 2011Q2

REPORT INFORMATION
  Report Type: 
  Country: None (occurrence: None)
  Receive Date: 20110617
  Receipt Date: 20110614
  Transmission Date: 20111010
  Serious: Yes (Other)
  Sender: FDA-Public Use
  Company Number: US-PFIZER INC-2011105137

PATIENT
  Sex: Female
  Weight: 51.247 kg

DRUGS (4)
  1. PSYLLIUM [Concomitant]
     Indication: BLOOD CHOLESTEROL INCREASED
     Dosage: UNK
  2. MUCINEX [Concomitant]
     Indication: COUGH
     Dosage: UNK
  3. LIPITOR [Suspect]
     Indication: BLOOD CHOLESTEROL INCREASED
     Dosage: 10 MG, DAILY
     Route: 048
  4. CENTRUM ULTRA WOMEN'S [Suspect]
     Dosage: UNK

REACTIONS (5)
  - FATIGUE [None]
  - RASH [None]
  - CEREBROVASCULAR ACCIDENT [None]
  - MUSCLE DISORDER [None]
  - ASTHENIA [None]
